FAERS Safety Report 10920713 (Version 1)
Quarter: 2015Q1

REPORT INFORMATION
  Report Type: Report from Study
  Country: JP (occurrence: JP)
  Receive Date: 20150317
  Receipt Date: 20150317
  Transmission Date: 20150721
  Serious: Yes (Death, Life-Threatening, Hospitalization)
  Sender: FDA-Public Use
  Company Number: JP-PFIZER INC-2012162808

PATIENT
  Age: 62 Year
  Sex: Female
  Weight: 53.5 kg

DRUGS (12)
  1. TORISEL [Suspect]
     Active Substance: TEMSIROLIMUS
     Indication: METASTATIC RENAL CELL CARCINOMA
     Dosage: 25 MG, WEEKLY
     Route: 041
     Dates: start: 20120207, end: 201203
  2. GOREI-SAN [Concomitant]
     Active Substance: HERBALS
     Indication: METASTATIC RENAL CELL CARCINOMA
     Dosage: 2.5 G, 3X/DAY
     Route: 048
     Dates: start: 20120222
  3. MUCOSTA [Concomitant]
     Active Substance: REBAMIPIDE
     Dosage: 100 MG, 3X/DAY
     Route: 048
  4. NAIXAN [Concomitant]
     Active Substance: NAPROXEN SODIUM
     Indication: METASTATIC RENAL CELL CARCINOMA
     Dosage: 200 MG, 2X/DAY
     Route: 048
  5. LASIX [Concomitant]
     Active Substance: FUROSEMIDE
     Indication: METASTATIC RENAL CELL CARCINOMA
     Dosage: 40 MG, 1X/DAY
     Route: 048
     Dates: start: 20120316
  6. OXYCONTIN [Concomitant]
     Active Substance: OXYCODONE HYDROCHLORIDE
     Indication: METASTATIC RENAL CELL CARCINOMA
     Dosage: 5 MG, 2X/DAY
     Route: 048
     Dates: start: 20120208
  7. NOVAMIN [Concomitant]
     Active Substance: PROCHLORPERAZINE MALEATE
     Indication: METASTATIC RENAL CELL CARCINOMA
     Dosage: 5 MG, 3X/DAY
     Route: 048
     Dates: start: 20120210
  8. AMOBAN [Concomitant]
     Active Substance: ZOPICLONE
     Indication: METASTATIC RENAL CELL CARCINOMA
     Dosage: 7.5 MG, 1X/DAY
     Route: 048
     Dates: start: 20120213
  9. MAGMITT [Concomitant]
     Active Substance: MAGNESIUM OXIDE
     Indication: METASTATIC RENAL CELL CARCINOMA
     Dosage: 660 MG, 3X/DAY
     Route: 048
     Dates: start: 20120208
  10. VENA [Concomitant]
     Active Substance: DIPHENHYDRAMINE HYDROCHLORIDE
     Indication: PROPHYLAXIS
     Dosage: 50 MG, WEEKLY
     Route: 048
     Dates: start: 20120207
  11. PURSENNID [Concomitant]
     Active Substance: SENNOSIDES A AND B
     Indication: METASTATIC RENAL CELL CARCINOMA
     Dosage: 24 MG, 1X/DAY
     Route: 048
     Dates: start: 20120208
  12. OXINORM [Concomitant]
     Active Substance: OXYCODONE HYDROCHLORIDE
     Indication: METASTATIC RENAL CELL CARCINOMA
     Dosage: 2.5 MG, 1X/DAY
     Route: 048
     Dates: start: 20120208

REACTIONS (4)
  - Metastatic renal cell carcinoma [Fatal]
  - Malaise [Not Recovered/Not Resolved]
  - Disease progression [Fatal]
  - Blood creatinine increased [Not Recovered/Not Resolved]

NARRATIVE: CASE EVENT DATE: 2012
